FAERS Safety Report 21605684 (Version 16)
Quarter: 2024Q1

REPORT INFORMATION
  Report Type: Spontaneous
  Country: JP (occurrence: JP)
  Receive Date: 20221116
  Receipt Date: 20240215
  Transmission Date: 20240410
  Serious: Yes (Disabling, Other)
  Sender: FDA-Public Use
  Company Number: JP-002147023-NVSJ2022JP100622

PATIENT
  Sex: Female

DRUGS (3)
  1. BEOVU [Suspect]
     Active Substance: BROLUCIZUMAB-DBLL
     Indication: Age-related macular degeneration
     Dosage: 6 MG
     Route: 031
     Dates: start: 20220826, end: 20220826
  2. BEOVU [Suspect]
     Active Substance: BROLUCIZUMAB-DBLL
     Dosage: 6 MG
     Route: 031
     Dates: start: 20221026, end: 20221026
  3. BETAMETHASONE SODIUM PHOSPHATE [Concomitant]
     Active Substance: BETAMETHASONE SODIUM PHOSPHATE
     Indication: Product used for unknown indication
     Dosage: UNK
     Route: 047
     Dates: start: 20220826

REACTIONS (10)
  - Vitreous opacities [Recovering/Resolving]
  - Posterior segment of eye anomaly [Recovered/Resolved]
  - Retinal vascular occlusion [Not Recovered/Not Resolved]
  - Blindness [Not Recovered/Not Resolved]
  - Retinal oedema [Unknown]
  - Retinal degeneration [Recovering/Resolving]
  - Eye inflammation [Recovered/Resolved]
  - Ocular hyperaemia [Unknown]
  - Keratitis [Unknown]
  - Vitreous floaters [Recovered/Resolved]

NARRATIVE: CASE EVENT DATE: 20221028
